FAERS Safety Report 8988486 (Version 1)
Quarter: 2012Q4

REPORT INFORMATION
  Report Type: Spontaneous
  Country: US (occurrence: None)
  Receive Date: 20121224
  Receipt Date: 20121224
  Transmission Date: 20130627
  Serious: Yes (Life-Threatening)
  Sender: FDA-Public Use
  Company Number: None

PATIENT
  Sex: Male
  Weight: 84.28 kg

DRUGS (1)
  1. REUMOFAN [Suspect]
     Indication: BACK PAIN
     Dosage: one tablet q 12 hrs po
     Route: 048
     Dates: start: 20120801, end: 20121030

REACTIONS (2)
  - Hepatic enzyme increased [None]
  - Fatigue [None]
